FAERS Safety Report 5615935-1 (Version None)
Quarter: 2008Q1

REPORT INFORMATION
  Report Type: 
  Country: None (occurrence: None)
  Receive Date: 20080206
  Receipt Date: 20080131
  Transmission Date: 20080703
  Serious: Yes (Death)
  Sender: FDA-Public Use
  Company Number: PHHO2006JP15739

PATIENT
  Age: 64 Year
  Sex: Male
  Weight: 59 kg

DRUGS (8)
  1. DIOVAN [Suspect]
     Dosage: 80 MG, QD
     Route: 048
     Dates: start: 20030530, end: 20031209
  2. CARDENALIN [Concomitant]
  3. SELOKEN [Concomitant]
  4. GASTER D [Concomitant]
  5. MAGLAX [Concomitant]
  6. LENDORMIN [Concomitant]
  7. ADALAT [Concomitant]
  8. TRICHLORMETHIAZIDE [Concomitant]

REACTIONS (1)
  - ROAD TRAFFIC ACCIDENT [None]
